FAERS Safety Report 4993000-4 (Version None)
Quarter: 2006Q2

REPORT INFORMATION
  Report Type: 
  Country: None (occurrence: None)
  Receive Date: 20060504
  Receipt Date: 20060327
  Transmission Date: 20061013
  Serious: Yes (Death, Hospitalization, Disabling, Other)
  Sender: FDA-Public Use
  Company Number: US-MERCK-0603USA04272

PATIENT
  Age: 57 Year
  Sex: Male
  Weight: 148 kg

DRUGS (3)
  1. VIOXX [Suspect]
     Indication: MONARTHRITIS
     Route: 048
     Dates: start: 20000315, end: 20000315
  2. VIOXX [Suspect]
     Route: 048
     Dates: start: 20000316, end: 20020430
  3. VIOXX [Suspect]
     Route: 048
     Dates: start: 20020701, end: 20030225

REACTIONS (24)
  - ARRHYTHMIA [None]
  - BUNDLE BRANCH BLOCK LEFT [None]
  - CARBUNCLE [None]
  - CARDIOPULMONARY FAILURE [None]
  - CELLULITIS [None]
  - CERUMEN IMPACTION [None]
  - DERMATITIS ALLERGIC [None]
  - DRUG INEFFECTIVE [None]
  - DYSPNOEA [None]
  - FOOT FRACTURE [None]
  - HEADACHE [None]
  - HYPERLIPIDAEMIA [None]
  - INSOMNIA [None]
  - JOINT INJURY [None]
  - MYOCARDIAL INFARCTION [None]
  - NAIL INFECTION [None]
  - OEDEMA PERIPHERAL [None]
  - OTITIS EXTERNA [None]
  - PERIPHERAL VASCULAR DISORDER [None]
  - SKIN ULCER [None]
  - STAPHYLOCOCCAL INFECTION [None]
  - TENDONITIS [None]
  - VENTRICULAR EXTRASYSTOLES [None]
  - WEIGHT DECREASED [None]
